FAERS Safety Report 7563678-X (Version None)
Quarter: 2011Q2

REPORT INFORMATION
  Report Type: 
  Country: None (occurrence: None)
  Receive Date: 20110621
  Receipt Date: 20110621
  Transmission Date: 20111010
  Serious: No
  Sender: FDA-Public Use
  Company Number: None

PATIENT
  Age: 56 Year
  Sex: Female

DRUGS (1)
  1. BISPHOSPHONATE INFUSION [Suspect]

REACTIONS (3)
  - FEMUR FRACTURE [None]
  - FALL [None]
  - MUSCULAR WEAKNESS [None]
